FAERS Safety Report 5701730-1 (Version None)
Quarter: 2008Q2

REPORT INFORMATION
  Report Type: 
  Country: None (occurrence: None)
  Receive Date: 20080408
  Receipt Date: 20080325
  Transmission Date: 20081010
  Serious: Yes (Hospitalization)
  Sender: FDA-Public Use
  Company Number: 2008BI003335

PATIENT
  Age: 55 Year
  Sex: Female

DRUGS (5)
  1. TYSABRI [Suspect]
     Indication: MULTIPLE SCLEROSIS
     Dosage: 300 MG; QM; IV
     Route: 042
     Dates: start: 20070817, end: 20080205
  2. AAVONEX [Concomitant]
  3. NITROFURANTOIN [Concomitant]
  4. PERCOCET [Concomitant]
  5. TORADOL [Concomitant]

REACTIONS (3)
  - BACK PAIN [None]
  - CROSS SENSITIVITY REACTION [None]
  - HYPERSENSITIVITY [None]
